FAERS Safety Report 18112608 (Version 1)
Quarter: 2020Q3

REPORT INFORMATION
  Report Type: Spontaneous
  Country: US (occurrence: US)
  Receive Date: 20200804
  Receipt Date: 20200804
  Transmission Date: 20201103
  Serious: Yes (Hospitalization)
  Sender: FDA-Public Use
  Company Number: None

PATIENT
  Sex: Female

DRUGS (22)
  1. LIDO/PRILOCN CRE [Concomitant]
  2. MUCINEX D [Concomitant]
     Active Substance: GUAIFENESIN\PSEUDOEPHEDRINE HYDROCHLORIDE
  3. EPINEPHRINE. [Concomitant]
     Active Substance: EPINEPHRINE
  4. NYSTATIN. [Concomitant]
     Active Substance: NYSTATIN
  5. ONDANSETRON [Concomitant]
     Active Substance: ONDANSETRON
  6. POT CL MICRO [Concomitant]
  7. HYDROCHLOROT [Concomitant]
     Active Substance: HYDROCHLOROTHIAZIDE
  8. LOSARTAN POT [Concomitant]
     Active Substance: LOSARTAN POTASSIUM
  9. BUT/APAP/CAF [Concomitant]
  10. CARVEDILOL. [Concomitant]
     Active Substance: CARVEDILOL
  11. DEXAMETHASON [Concomitant]
     Active Substance: DEXAMETHASONE
  12. TRIAMCINOLON CRE [Concomitant]
  13. OXYBUTYNIN. [Concomitant]
     Active Substance: OXYBUTYNIN CHLORIDE
  14. PROMETHAZINE [Concomitant]
     Active Substance: PROMETHAZINE HYDROCHLORIDE
  15. CAPECITABINE 500MG TAB [Suspect]
     Active Substance: CAPECITABINE
     Dosage: ?          OTHER DOSE:4?5 TABS;?
     Route: 048
     Dates: start: 20200528
  16. HYDROCO/APAP [Concomitant]
     Active Substance: ACETAMINOPHEN\HYDROCODONE
  17. M?DRYL [Concomitant]
     Active Substance: DIPHENHYDRAMINE HYDROCHLORIDE
  18. METFORMIN [Concomitant]
     Active Substance: METFORMIN HYDROCHLORIDE
  19. CEPHALEXIN. [Concomitant]
     Active Substance: CEPHALEXIN
  20. DULOXETINE. [Concomitant]
     Active Substance: DULOXETINE
  21. GABAPENTIN. [Concomitant]
     Active Substance: GABAPENTIN
  22. LIDOCAINE. [Suspect]
     Active Substance: LIDOCAINE

REACTIONS (1)
  - Palmar-plantar erythrodysaesthesia syndrome [None]
